FAERS Safety Report 7716869-9 (Version None)
Quarter: 2011Q3

REPORT INFORMATION
  Report Type: 
  Country: None (occurrence: None)
  Receive Date: 20110829
  Receipt Date: 20110816
  Transmission Date: 20111222
  Serious: Yes (Hospitalization)
  Sender: FDA-Public Use
  Company Number: US-ELI_LILLY_AND_COMPANY-US201102000587

PATIENT
  Sex: Female

DRUGS (7)
  1. WELLBUTRIN [Concomitant]
  2. DIOVAN [Concomitant]
  3. FORTEO [Suspect]
     Dosage: 20 UG, QD
     Route: 065
  4. FORTEO [Suspect]
     Indication: OSTEOPOROSIS
     Dosage: 20 UG, DAILY (1/D)
     Route: 065
     Dates: start: 20100101
  5. ROZEREM [Concomitant]
  6. SYNTHROID [Concomitant]
  7. BENADRYL [Concomitant]

REACTIONS (3)
  - HOSPITALISATION [None]
  - DRUG DOSE OMISSION [None]
  - HYPERSENSITIVITY [None]
